FAERS Safety Report 8312133-8 (Version None)
Quarter: 2012Q2

REPORT INFORMATION
  Report Type: 
  Country: None (occurrence: None)
  Receive Date: 20120425
  Receipt Date: 20120419
  Transmission Date: 20120825
  Serious: Yes (Other)
  Sender: FDA-Public Use
  Company Number: BR-ABBOTT-08P-020-0452074-00

PATIENT
  Sex: Female
  Weight: 46 kg

DRUGS (7)
  1. MELOXICAM/CARIPROSODOL/PREDNISONE [Concomitant]
     Indication: RHEUMATOID ARTHRITIS
     Dosage: UNKNOWN/150MG/10MG
     Route: 048
     Dates: start: 19990101
  2. HUMIRA [Suspect]
     Indication: RHEUMATOID ARTHRITIS
     Route: 058
     Dates: start: 20050101, end: 20080101
  3. CORTICOID [Concomitant]
     Indication: PRODUCT USED FOR UNKNOWN INDICATION
  4. CARIPROSODOL/NIMESULIDE/RANIDITINE [Concomitant]
     Indication: RHEUMATOID ARTHRITIS
     Dosage: 150MG/100MG/150MG
     Route: 048
     Dates: start: 20091001
  5. TIOTROPIUM [Concomitant]
     Indication: CHRONIC OBSTRUCTIVE PULMONARY DISEASE
     Route: 048
     Dates: start: 20090401
  6. CLOMIPRAMINE HCL [Concomitant]
     Indication: DEPRESSION
     Route: 048
     Dates: start: 19940101
  7. HUMIRA [Suspect]

REACTIONS (8)
  - COUGH [None]
  - UPPER LIMB FRACTURE [None]
  - RIB FRACTURE [None]
  - TUBERCULOSIS [None]
  - PYREXIA [None]
  - FALL [None]
  - ULCERATIVE KERATITIS [None]
  - LUNG NEOPLASM [None]
